FAERS Safety Report 4631119-8 (Version None)
Quarter: 2005Q2

REPORT INFORMATION
  Report Type: 
  Country: None (occurrence: None)
  Receive Date: 20050406
  Receipt Date: 20050406
  Transmission Date: 20051028
  Serious: Yes (Hospitalization)
  Sender: FDA-Public Use
  Company Number: None

PATIENT
  Age: 74 Year
  Sex: Female
  Weight: 63 kg

DRUGS (10)
  1. IRESSA [Suspect]
     Indication: PNEUMONIA
     Dosage: 250 MG PO QD  (UP TO HOSPITALIZATION THEN PT SHOULD BE OFF)
     Route: 048
  2. FASLODEX [Suspect]
     Indication: CHRONIC OBSTRUCTIVE AIRWAYS DISEASE EXACERBATED
     Dosage: 250 MG Q MONTH
  3. INHALERS [Concomitant]
  4. INSULIN [Concomitant]
  5. LIPITOR [Concomitant]
  6. FULVESTRAN INJECTIONS [Concomitant]
  7. AVAPRO [Concomitant]
  8. ASPIRIN [Concomitant]
  9. NEXIUM [Concomitant]
  10. PLAVIX [Concomitant]

REACTIONS (6)
  - BLOOD GLUCOSE INCREASED [None]
  - CHRONIC OBSTRUCTIVE AIRWAYS DISEASE EXACERBATED [None]
  - CONDITION AGGRAVATED [None]
  - PNEUMONIA [None]
  - PRODUCTIVE COUGH [None]
  - UPPER RESPIRATORY TRACT INFECTION [None]
